FAERS Safety Report 14049560 (Version 3)
Quarter: 2017Q4

REPORT INFORMATION
  Report Type: Spontaneous
  Country: DE (occurrence: DE)
  Receive Date: 20171005
  Receipt Date: 20171117
  Transmission Date: 20180321
  Serious: Yes (Hospitalization)
  Sender: FDA-Public Use
  Company Number: DE-ASCEND THERAPEUTICS-2028906

PATIENT
  Age: 45 Year
  Sex: Female
  Weight: 57 kg

DRUGS (10)
  1. ESTROGEL [Suspect]
     Active Substance: ESTRADIOL
     Indication: ALOPECIA
     Route: 062
     Dates: start: 201305
  2. DYMISTA [Concomitant]
     Active Substance: AZELASTINE HYDROCHLORIDE\FLUTICASONE PROPIONATE
     Route: 065
  3. MOMETAHEXAL (MOMETASONE FUROATE) [Concomitant]
     Route: 055
     Dates: start: 201612
  4. MONTELUKAST [Concomitant]
     Active Substance: MONTELUKAST SODIUM
     Route: 048
     Dates: start: 2006
  5. AIRFLUSAL (FLUTICASONE PROPIONATE, SALMETEROL XINAFOATE) [Concomitant]
     Route: 055
     Dates: start: 2017
  6. ANDROCUR (CYPROTERONE ACETATE) [Suspect]
     Active Substance: CYPROTERONE ACETATE
     Route: 048
     Dates: start: 201305
  7. CETIRIZINE [Concomitant]
     Active Substance: CETIRIZINE HYDROCHLORIDE
     Route: 048
     Dates: start: 2006
  8. PANTOPRAZOLE (PANTOPRAZOLE) [Concomitant]
     Active Substance: PANTOPRAZOLE SODIUM
     Route: 048
     Dates: start: 20170120
  9. BUDES (BUDESONIDE) [Concomitant]
     Route: 055
  10. ASPIRIN PROTECT (ACETYLSALICYLIC ACID) [Concomitant]
     Route: 048
     Dates: start: 20170120

REACTIONS (3)
  - Product use in unapproved indication [None]
  - Nasal polyps [Not Recovered/Not Resolved]
  - Aspirin-exacerbated respiratory disease [Unknown]

NARRATIVE: CASE EVENT DATE: 201305
